FAERS Safety Report 19879943 (Version 1)
Quarter: 2021Q3

REPORT INFORMATION
  Report Type: Spontaneous
  Country: RO (occurrence: RO)
  Receive Date: 20210924
  Receipt Date: 20210924
  Transmission Date: 20211014
  Serious: Yes (Hospitalization)
  Sender: FDA-Public Use
  Company Number: RO-JUBILANT CADISTA PHARMACEUTICALS-2021JUB00280

PATIENT
  Age: 73 Year
  Sex: Female

DRUGS (4)
  1. INDOMETHACIN. [Suspect]
     Active Substance: INDOMETHACIN
     Indication: ULCERATIVE KERATITIS
     Dosage: UNK, 4X/DAY
  2. PRESERVATIVE?FREE LUBRICANT [Concomitant]
     Indication: DRY EYE
     Route: 047
  3. METHOTREXATE. [Concomitant]
     Active Substance: METHOTREXATE
     Indication: RHEUMATOID ARTHRITIS
     Dosage: 2.5 MG, 3X/WEEK
     Route: 065
  4. GENTAMICIN. [Concomitant]
     Active Substance: GENTAMICIN
     Indication: ULCERATIVE KERATITIS

REACTIONS (1)
  - Corneal perforation [Recovered/Resolved]
